FAERS Safety Report 6453713-4 (Version None)
Quarter: 2009Q4

REPORT INFORMATION
  Report Type: 
  Country: None (occurrence: None)
  Receive Date: 20091124
  Receipt Date: 20091001
  Transmission Date: 20100525
  Serious: Yes (Other)
  Sender: FDA-Public Use
  Company Number: US-AMGEN-US354552

PATIENT
  Sex: Female
  Weight: 104.4 kg

DRUGS (2)
  1. NPLATE [Suspect]
     Indication: THROMBOCYTOPENIA
     Route: 058
     Dates: start: 20090326, end: 20090604
  2. RED BLOOD CELLS [Concomitant]
     Dates: start: 20090326

REACTIONS (1)
  - DRUG INEFFECTIVE [None]
